FAERS Safety Report 25589814 (Version 1)
Quarter: 2025Q3

REPORT INFORMATION
  Report Type: Report from Study
  Country: EU (occurrence: EU)
  Receive Date: 20250722
  Receipt Date: 20250722
  Transmission Date: 20251020
  Serious: Yes (Other)
  Sender: JOHNSON AND JOHNSON
  Company Number: EU-JNJFOC-20250716362

PATIENT

DRUGS (1)
  1. ESKETAMINE [Suspect]
     Active Substance: ESKETAMINE
     Indication: Depression
     Route: 045

REACTIONS (5)
  - Suicide attempt [Unknown]
  - Dissociation [Unknown]
  - Sedation [Unknown]
  - Dizziness [Unknown]
  - Drug ineffective [Unknown]
